FAERS Safety Report 19048684 (Version 1)
Quarter: 2021Q1

REPORT INFORMATION
  Report Type: Report from Study
  Country: MX (occurrence: MX)
  Receive Date: 20210323
  Receipt Date: 20210323
  Transmission Date: 20210420
  Serious: Yes (Death)
  Sender: FDA-Public Use
  Company Number: NVSC2021MX066505

PATIENT
  Age: 90 Year
  Sex: Male
  Weight: 70 kg

DRUGS (2)
  1. REVOLADE [Suspect]
     Active Substance: ELTROMBOPAG OLAMINE
     Indication: MYELODYSPLASTIC SYNDROME
     Dosage: 1 DF, QD, (25 MG)
     Route: 048
  2. REVOLADE [Suspect]
     Active Substance: ELTROMBOPAG OLAMINE
     Dosage: 1 DF, QD, (50 MG)
     Route: 048

REACTIONS (3)
  - Hip fracture [Fatal]
  - Product use in unapproved indication [Unknown]
  - General physical health deterioration [Fatal]

NARRATIVE: CASE EVENT DATE: 202102
